FAERS Safety Report 9191354 (Version 1)
Quarter: 2013Q1

REPORT INFORMATION
  Report Type: Spontaneous
  Country: US (occurrence: US)
  Receive Date: 20130326
  Receipt Date: 20130326
  Transmission Date: 20140127
  Serious: No
  Sender: FDA-Public Use
  Company Number: US-ASTRAZENECA-2013SE14737

PATIENT
  Age: 29 Year
  Sex: Female
  Weight: 102.5 kg

DRUGS (1)
  1. RHINOCORT AQUA [Suspect]
     Indication: NASAL CONGESTION
     Dosage: 1 SPRAY EACH NOSTRIL ONCE
     Route: 045
     Dates: start: 20130303, end: 20130303

REACTIONS (2)
  - Dyspnoea [Recovered/Resolved]
  - Chest discomfort [Recovered/Resolved]
